FAERS Safety Report 9274445 (Version 1)
Quarter: 2013Q2

REPORT INFORMATION
  Report Type: Spontaneous
  Country: DE (occurrence: DE)
  Receive Date: 20130506
  Receipt Date: 20130506
  Transmission Date: 20140414
  Serious: Yes (Other)
  Sender: FDA-Public Use
  Company Number: DE-AMGEN-DEUSP2013020792

PATIENT
  Sex: Male
  Weight: 76 kg

DRUGS (3)
  1. VECTIBIX [Suspect]
     Indication: COLORECTAL CANCER METASTATIC
     Dosage: 6 MG/KG EQUALS 456 MG, Q2WK
     Route: 042
     Dates: start: 20130319, end: 20130422
  2. DOXYCYCLIN                         /00055701/ [Concomitant]
     Indication: RASH
     Dosage: 100 MG, BID
     Route: 048
     Dates: start: 20130402, end: 20130407
  3. MINICYCLINE [Concomitant]
     Dosage: UNK

REACTIONS (4)
  - Rash [Recovering/Resolving]
  - Skin reaction [Recovering/Resolving]
  - Rash erythematous [Recovering/Resolving]
  - Rash pustular [Recovering/Resolving]
